FAERS Safety Report 16127631 (Version 2)
Quarter: 2019Q2

REPORT INFORMATION
  Report Type: Spontaneous
  Country: US (occurrence: US)
  Receive Date: 20190328
  Receipt Date: 20190402
  Transmission Date: 20190711
  Serious: No
  Sender: FDA-Public Use
  Company Number: US-PFIZER INC-2019133557

PATIENT
  Age: 48 Year
  Sex: Female

DRUGS (3)
  1. LYRICA [Suspect]
     Active Substance: PREGABALIN
     Dosage: UNK [STARTED OFF WITH 100]
  2. LYRICA [Suspect]
     Active Substance: PREGABALIN
     Dosage: 200 MG, UNK
  3. CORN STARCH [Suspect]
     Active Substance: STARCH, CORN
     Dosage: UNK

REACTIONS (2)
  - Reaction to excipient [Unknown]
  - Contraindicated product administered [Unknown]
